FAERS Safety Report 17169543 (Version 2)
Quarter: 2020Q1

REPORT INFORMATION
  Report Type: Report from Study
  Country: US (occurrence: US)
  Receive Date: 20191218
  Receipt Date: 20200116
  Transmission Date: 20200409
  Serious: Yes (Hospitalization)
  Sender: FDA-Public Use
  Company Number: US-VERTEX PHARMACEUTICALS-2019-012741

PATIENT
  Age: 43 Year
  Sex: Female

DRUGS (23)
  1. TRIKAFTA [Suspect]
     Active Substance: ELEXACAFTOR\IVACAFTOR\TEZACAFTOR
     Indication: CYSTIC FIBROSIS
     Dosage: 100 MG ELEXACAFTOR/ 50 MG TEZACAFTOR/ 75 MG IVACAFTOR; 150MG IVACAFTOR (UNKNOWN FREQUENCY)
     Route: 048
     Dates: start: 20191123
  2. ZYRTEC [Concomitant]
     Active Substance: CETIRIZINE HYDROCHLORIDE
     Dosage: 10 MG DAILY
     Route: 048
  3. CAYSTON [Concomitant]
     Active Substance: AZTREONAM
     Dosage: 75 MG, THRICE A DAY EVERY OTHER MONTH
  4. SODIUM CHLORIDE. [Concomitant]
     Active Substance: SODIUM CHLORIDE
     Dosage: 4 ML EVERY 12 HOURS
  5. TRIKAFTA [Suspect]
     Active Substance: ELEXACAFTOR\IVACAFTOR\TEZACAFTOR
     Dosage: 100MG TEZACAFTOR/150MG IVACAFTOR AM; 150MG IVACAFTOR PM
     Route: 048
  6. MUCOMYST [ACETYLCYSTEINE] [Concomitant]
     Dosage: 4 ML, EVERY 6 HOURS
  7. ZITHROMAX [Concomitant]
     Active Substance: AZITHROMYCIN DIHYDRATE
     Dosage: 1 TABLET, DAILY
     Route: 048
  8. PARI [Concomitant]
  9. INSULIN [Concomitant]
     Active Substance: INSULIN NOS
  10. LENABASUM. [Concomitant]
     Active Substance: LENABASUM
     Dosage: 1 CAPSULE, BID
     Route: 048
  11. TRIKAFTA [Suspect]
     Active Substance: ELEXACAFTOR\IVACAFTOR\TEZACAFTOR
     Dosage: REDUCED DOSE
     Route: 048
  12. PROVENTIL [Concomitant]
     Active Substance: ALBUTEROL
     Indication: DYSPNOEA
     Dosage: 1 VIAL, EVERY 6 HOURS
  13. FLONASE [MOMETASONE FUROATE] [Concomitant]
     Active Substance: MOMETASONE FUROATE
     Dosage: 1 SPRAY, BID
     Route: 045
  14. ADVAIR HFA [Concomitant]
     Active Substance: FLUTICASONE PROPIONATE\SALMETEROL XINAFOATE
     Dosage: 1 PUFF, BID
  15. CELEXA [CELECOXIB] [Concomitant]
     Active Substance: CELECOXIB
     Dosage: 1 TABLET, DAILY
     Route: 048
  16. PROTONIX [Concomitant]
     Active Substance: PANTOPRAZOLE SODIUM
     Dosage: 1 TABLET, DAILY
     Route: 048
  17. CREON [Concomitant]
     Active Substance: PANCRELIPASE AMYLASE\PANCRELIPASE LIPASE\PANCRELIPASE PROTEASE
     Dosage: 5 CAPSULES THRICE WITH MEALS AND 2 CAPSULES WITH SNACKS
     Route: 048
  18. PULMOZYME [Concomitant]
     Active Substance: DORNASE ALFA
     Dosage: 2.5 MG. BID
  19. SODIUM BICARBONATE;SODIUM CHLORIDE [Concomitant]
     Dosage: SALINE NASAL RINSE
     Route: 045
  20. TOBI PODHALER [Concomitant]
     Active Substance: TOBRAMYCIN
     Dosage: 4 CAPSULES INTO LUNGS EVERY 12 HOURS
  21. HUMALOG [Concomitant]
     Active Substance: INSULIN LISPRO
  22. ZANTAC [Concomitant]
     Active Substance: RANITIDINE HYDROCHLORIDE
     Dosage: 1 TABLET DAILY (AS NEEDED)
     Route: 048
  23. NOXAFIL [Concomitant]
     Active Substance: POSACONAZOLE
     Dosage: 3 TABLETS, DAILY
     Route: 048

REACTIONS (5)
  - Back pain [Recovered/Resolved]
  - Oedema peripheral [Recovered/Resolved]
  - Vomiting [Recovered/Resolved]
  - Influenza like illness [Recovered/Resolved]
  - Distal intestinal obstruction syndrome [Recovered/Resolved]

NARRATIVE: CASE EVENT DATE: 201911
